FAERS Safety Report 8539485-8 (Version None)
Quarter: 2012Q3

REPORT INFORMATION
  Report Type: 
  Country: None (occurrence: None)
  Receive Date: 20120726
  Receipt Date: 20120720
  Transmission Date: 20120928
  Serious: Yes (Death, Hospitalization)
  Sender: FDA-Public Use
  Company Number: BR-US-EMD SERONO, INC.-7113578

PATIENT
  Sex: Male

DRUGS (5)
  1. BENEROC (MULTIVITAMINS AND MINERALS) [Concomitant]
     Indication: PRODUCT USED FOR UNKNOWN INDICATION
  2. METICORTEN [Concomitant]
     Indication: PRODUCT USED FOR UNKNOWN INDICATION
  3. REBIF [Suspect]
     Indication: RELAPSING-REMITTING MULTIPLE SCLEROSIS
     Dates: start: 20080401, end: 20120303
  4. TYLENOL [Concomitant]
     Indication: PRODUCT USED FOR UNKNOWN INDICATION
  5. COMPLEX B VITAMINS [Concomitant]
     Indication: PRODUCT USED FOR UNKNOWN INDICATION

REACTIONS (4)
  - DYSPNOEA [None]
  - MULTI-ORGAN FAILURE [None]
  - PROSTATOMEGALY [None]
  - PULMONARY EMBOLISM [None]
